FAERS Safety Report 10696508 (Version 2)
Quarter: 2015Q2

REPORT INFORMATION
  Report Type: Spontaneous
  Country: US (occurrence: US)
  Receive Date: 20150107
  Receipt Date: 20150420
  Transmission Date: 20150821
  Serious: Yes (Hospitalization, Other)
  Sender: FDA-Public Use
  Company Number: US-TEVA-532061USA

PATIENT
  Age: 15 Year
  Sex: Female
  Weight: 68.55 kg

DRUGS (3)
  1. AMOXICILLIN. [Concomitant]
     Active Substance: AMOXICILLIN
     Route: 048
  2. CLARAVIS [Suspect]
     Active Substance: ISOTRETINOIN
     Indication: ACNE CYSTIC
     Dosage: 20 MILLIGRAM DAILY;
     Route: 048
     Dates: start: 201412
  3. ORTHO TRI CYCLEN LO [Concomitant]
     Active Substance: ETHINYL ESTRADIOL\NORGESTIMATE
     Dosage: 0.18/0.215/0.25 MG

REACTIONS (5)
  - Dehydroepiandrosterone increased [Unknown]
  - Blood triglycerides increased [Unknown]
  - Bone disorder [Recovered/Resolved]
  - Exostosis [Recovered/Resolved]
  - Blood cholesterol increased [Unknown]

NARRATIVE: CASE EVENT DATE: 201412
